FAERS Safety Report 9465139 (Version 3)
Quarter: 2014Q2

REPORT INFORMATION
  Report Type: Spontaneous
  Country: US (occurrence: US)
  Receive Date: 20130819
  Receipt Date: 20140618
  Transmission Date: 20141212
  Serious: Yes (Other)
  Sender: FDA-Public Use
  Company Number: US-ELI_LILLY_AND_COMPANY-US201308003518

PATIENT
  Age: 49 Year
  Sex: Female

DRUGS (8)
  1. CYMBALTA [Suspect]
     Indication: MAJOR DEPRESSION
     Dosage: 60 MG, QD
     Route: 065
     Dates: start: 201202
  2. CYMBALTA [Suspect]
     Indication: OSTEOARTHRITIS
     Dosage: 30 MG, UNK
     Route: 065
  3. CYMBALTA [Suspect]
     Dosage: 30 MG, UNK
     Route: 065
  4. CYMBALTA [Suspect]
     Dosage: 60 MG, QD
     Route: 065
  5. CYMBALTA [Suspect]
     Dosage: 20 MG, UNKNOWN
     Route: 065
  6. CYMBALTA [Suspect]
     Dosage: 10 MG, UNKNOWN
     Route: 065
     Dates: end: 201308
  7. DULOXETINE HYDROCHLORIDE [Suspect]
     Indication: MAJOR DEPRESSION
     Route: 065
  8. DULOXETINE HYDROCHLORIDE [Suspect]
     Indication: OSTEOARTHRITIS

REACTIONS (9)
  - Suicidal ideation [Recovered/Resolved]
  - Emotional disorder [Recovered/Resolved]
  - Crying [Recovered/Resolved]
  - Depression [Recovered/Resolved]
  - Drug withdrawal syndrome [Recovered/Resolved]
  - Irritability [Recovered/Resolved]
  - Headache [Recovered/Resolved]
  - Drug ineffective [Unknown]
  - Off label use [Unknown]
